FAERS Safety Report 6564416-X (Version None)
Quarter: 2010Q1

REPORT INFORMATION
  Report Type: 
  Country: None (occurrence: None)
  Receive Date: 20100201
  Receipt Date: 20100127
  Transmission Date: 20100710
  Serious: Yes (Hospitalization)
  Sender: FDA-Public Use
  Company Number: DE-BRISTOL-MYERS SQUIBB COMPANY-14889570

PATIENT
  Age: 69 Year
  Sex: Male

DRUGS (7)
  1. CISPLATIN [Suspect]
     Indication: HEAD AND NECK CANCER
     Route: 065
     Dates: start: 20090505
  2. PLACEBO [Suspect]
  3. PANTOPRAZOLE [Concomitant]
  4. LEVOTHYROXINE SODIUM [Concomitant]
  5. NORVASC [Concomitant]
  6. LACTULOSE [Concomitant]
  7. METOCLOPRAMIDE HCL [Concomitant]

REACTIONS (1)
  - DUODENAL ULCER HAEMORRHAGE [None]
